FAERS Safety Report 7262671-4 (Version None)
Quarter: 2011Q1

REPORT INFORMATION
  Report Type: 
  Country: None (occurrence: None)
  Receive Date: 20110130
  Receipt Date: 20100924
  Transmission Date: 20110831
  Serious: No
  Sender: FDA-Public Use
  Company Number: US-ABBOTT-10P-163-0673663-00

PATIENT
  Age: 49 Year
  Sex: Female

DRUGS (14)
  1. HUMIRA [Suspect]
     Indication: RHEUMATOID ARTHRITIS
     Dates: start: 20100801, end: 20100909
  2. OYSTER SHELL CALCIUM [Concomitant]
     Indication: PRODUCT USED FOR UNKNOWN INDICATION
  3. ASPIRIN [Concomitant]
     Indication: PRODUCT USED FOR UNKNOWN INDICATION
  4. METHOTREXATE [Concomitant]
     Indication: RHEUMATOID ARTHRITIS
  5. AMLODIPINE [Concomitant]
     Indication: HYPERTENSION
  6. NEXIUM [Concomitant]
     Indication: GASTROOESOPHAGEAL REFLUX DISEASE
  7. LISINOPRIL [Concomitant]
     Indication: HYPERTENSION
  8. SINGULAIR [Concomitant]
     Indication: HYPERSENSITIVITY
  9. PRENATAL VITAMINS [Concomitant]
     Indication: PRODUCT USED FOR UNKNOWN INDICATION
  10. FOLIC ACID [Concomitant]
     Indication: PRODUCT USED FOR UNKNOWN INDICATION
  11. ETOLADIC [Concomitant]
     Indication: PAIN
  12. EFFEXOR [Concomitant]
     Indication: PRODUCT USED FOR UNKNOWN INDICATION
  13. NIASPAN [Concomitant]
     Indication: BLOOD CHOLESTEROL INCREASED
  14. ETOLADIC [Concomitant]
     Indication: SWELLING

REACTIONS (2)
  - LABYRINTHITIS [None]
  - UPPER RESPIRATORY TRACT INFECTION [None]
